FAERS Safety Report 18898706 (Version 1)
Quarter: 2021Q1

REPORT INFORMATION
  Report Type: Spontaneous
  Country: US (occurrence: US)
  Receive Date: 20210212
  Receipt Date: 20210212
  Transmission Date: 20210420
  Serious: Yes (Death)
  Sender: FDA-Public Use
  Company Number: None

PATIENT
  Age: 77 Year
  Sex: Female

DRUGS (1)
  1. VELTASSA [Suspect]
     Active Substance: PATIROMER
     Indication: HYPERKALAEMIA
     Route: 048
     Dates: start: 20200820, end: 202101

REACTIONS (4)
  - Cardiac failure [None]
  - Multiple organ dysfunction syndrome [None]
  - Renal failure [None]
  - Respiratory failure [None]

NARRATIVE: CASE EVENT DATE: 20210209
